FAERS Safety Report 6417495-4 (Version None)
Quarter: 2009Q4

REPORT INFORMATION
  Report Type: 
  Country: None (occurrence: None)
  Receive Date: 20091027
  Receipt Date: 20091027
  Transmission Date: 20100525
  Serious: Yes (Hospitalization)
  Sender: FDA-Public Use
  Company Number: None

PATIENT
  Sex: Female
  Weight: 69.9 kg

DRUGS (6)
  1. TAXOL [Suspect]
     Dosage: 247 MG
     Dates: end: 20090908
  2. TOPOTECAN [Suspect]
     Dosage: 3.18 MG
     Dates: end: 20090910
  3. ATIVAN [Concomitant]
  4. CELEXA [Concomitant]
  5. FENTANYL TRANSDERMAL SYSTEM [Concomitant]
  6. OXYCODONE [Concomitant]

REACTIONS (3)
  - ABDOMINAL PAIN LOWER [None]
  - CONSTIPATION [None]
  - FLATULENCE [None]
